FAERS Safety Report 15765173 (Version 2)
Quarter: 2019Q1

REPORT INFORMATION
  Report Type: Spontaneous
  Country: US (occurrence: US)
  Receive Date: 20181227
  Receipt Date: 20190102
  Transmission Date: 20190417
  Serious: No
  Sender: FDA-Public Use
  Company Number: US-PCCINC-T201402774

PATIENT

DRUGS (32)
  1. GABLOFEN [Suspect]
     Active Substance: BACLOFEN
     Indication: PAIN
     Dosage: 400 ?G, QD
     Route: 037
  2. GABLOFEN [Suspect]
     Active Substance: BACLOFEN
     Indication: POST LAMINECTOMY SYNDROME
     Dosage: 425 ?G/ML AT
     Route: 037
     Dates: start: 20151027
  3. VITAMIN C [Concomitant]
     Active Substance: ASCORBIC ACID
  4. VIVELLE-DOT [Concomitant]
     Active Substance: ESTRADIOL
  5. WELLBUTRIN [Concomitant]
     Active Substance: BUPROPION HYDROCHLORIDE
  6. ZENPEP [Concomitant]
     Active Substance: PANCRELIPASE AMYLASE\PANCRELIPASE LIPASE\PANCRELIPASE PROTEASE
  7. LEVOXYL [Concomitant]
     Active Substance: LEVOTHYROXINE SODIUM
  8. MAXALT [Concomitant]
     Active Substance: RIZATRIPTAN BENZOATE
  9. PATADAY [Concomitant]
     Active Substance: OLOPATADINE HYDROCHLORIDE
  10. PROMETHEGAN [Concomitant]
     Active Substance: PROMETHAZINE HYDROCHLORIDE
  11. TRAZADOL [Concomitant]
     Active Substance: TRAZODONE HYDROCHLORIDE
  12. ALPHA LIPOIC ACID [Concomitant]
     Active Substance: .ALPHA.-LIPOIC ACID
  13. COENZYME Q10 [Concomitant]
     Active Substance: UBIDECARENONE
  14. CYTOMEL [Concomitant]
     Active Substance: LIOTHYRONINE SODIUM
  15. MAGNESIUM [Concomitant]
     Active Substance: MAGNESIUM
  16. VOLTAREN [Concomitant]
     Active Substance: DICLOFENAC SODIUM
  17. MORPHINE [Suspect]
     Active Substance: MORPHINE
     Indication: POST LAMINECTOMY SYNDROME
  18. FLONASE [Concomitant]
     Active Substance: FLUTICASONE PROPIONATE
  19. MILK THISTLE PLUS                  /08512201/ [Concomitant]
  20. NIFEDIPINE. [Concomitant]
     Active Substance: NIFEDIPINE
  21. VITAMIN B12 [Concomitant]
     Active Substance: CYANOCOBALAMIN
  22. BIOTIN [Concomitant]
     Active Substance: BIOTIN
  23. NYSTATIN/TRIAMCINOLONE [Concomitant]
     Active Substance: NYSTATIN\TRIAMCINOLONE
  24. PROMETHAZINE [Concomitant]
     Active Substance: PROMETHAZINE\PROMETHAZINE HYDROCHLORIDE
  25. RELISTOR [Concomitant]
     Active Substance: METHYLNALTREXONE BROMIDE
  26. SKELAXIN [Concomitant]
     Active Substance: METAXALONE
  27. VITAMIN B2                         /00154901/ [Concomitant]
     Active Substance: RIBOFLAVIN
  28. VITAMIN D3 [Concomitant]
     Active Substance: CHOLECALCIFEROL
  29. VSL 3 [Concomitant]
     Active Substance: PROBIOTICS NOS
  30. MORPHINE [Suspect]
     Active Substance: MORPHINE
     Indication: PAIN
     Dosage: UNK
     Route: 037
  31. ONDANSETRON [Concomitant]
     Active Substance: ONDANSETRON
  32. SENOKOT [Concomitant]
     Active Substance: SENNOSIDES

REACTIONS (4)
  - Muscle spasticity [Unknown]
  - Off label use of device [Unknown]
  - Withdrawal syndrome [Unknown]
  - Device battery issue [Recovered/Resolved]

NARRATIVE: CASE EVENT DATE: 20140601
